FAERS Safety Report 7299776-8 (Version None)
Quarter: 2011Q1

REPORT INFORMATION
  Report Type: 
  Country: None (occurrence: None)
  Receive Date: 20110209
  Receipt Date: 20110124
  Transmission Date: 20110831
  Serious: Yes (Hospitalization, Other)
  Sender: FDA-Public Use
  Company Number: 2011-00127

PATIENT
  Age: 60 Year
  Sex: Female

DRUGS (13)
  1. LYRICA [Suspect]
     Indication: GENERALISED ANXIETY DISORDER
     Dosage: 150 MG (50 , 3 IN 1 D), 225 MG (75 MG, 3 IN 1 D), 300 MG (100 MG)
     Dates: start: 20100501
  2. LYRICA [Suspect]
     Indication: GENERALISED ANXIETY DISORDER
     Dosage: 150 MG (50 , 3 IN 1 D), 225 MG (75 MG, 3 IN 1 D), 300 MG (100 MG)
     Dates: start: 20100701, end: 20100801
  3. LYRICA [Suspect]
     Indication: GENERALISED ANXIETY DISORDER
     Dosage: 150 MG (50 , 3 IN 1 D), 225 MG (75 MG, 3 IN 1 D), 300 MG (100 MG)
     Dates: end: 20100913
  4. ZOPICLONE [Suspect]
     Indication: SLEEP DISORDER
     Dosage: 3.75 MG (3.75 MG, 1 IN 1D)
  5. ATENOLOL [Suspect]
     Indication: PRODUCT USED FOR UNKNOWN INDICATION
     Dosage: 25 MG (25 MG, 1 IN 1 D)
  6. DIAZEPAM [Suspect]
     Indication: PRODUCT USED FOR UNKNOWN INDICATION
     Dosage: UNKNOWN
  7. SERTRALINE (SERTRALINE HYDROCHLORIDE) [Suspect]
     Indication: PRODUCT USED FOR UNKNOWN INDICATION
     Dosage: 100 MG (100 MG, 1 IN 1 D), 150 MG (150 MG)
  8. SIMVASTATIN [Suspect]
     Indication: PRODUCT USED FOR UNKNOWN INDICATION
     Dosage: 20 MG (20 MG, 1 IN 1 D)
  9. CITALOPRAM [Suspect]
     Indication: PRODUCT USED FOR UNKNOWN INDICATION
  10. PROMETHAZINE [Suspect]
     Indication: SLEEP DISORDER
     Dosage: 50 MG (50 MG)
  11. PROMETHAZINE [Suspect]
     Indication: ANXIETY
     Dosage: 50 MG (50 MG)
  12. DOTHIEPIN (DOSULEPIN) [Suspect]
     Indication: DEPRESSION
     Dosage: 50 MG (50 MG, 1 IN 1 D)
  13. ACETYL SALICULIC ACID (ASPIRIN) [Suspect]
     Indication: PRODUCT USED FOR UNKNOWN INDICATION
     Dosage: 75 MG (75 MG, 1 IN 1 D)

REACTIONS (47)
  - SUICIDAL IDEATION [None]
  - CONFUSIONAL STATE [None]
  - INITIAL INSOMNIA [None]
  - WEIGHT DECREASED [None]
  - SOMATOFORM DISORDER [None]
  - CONSTRICTED AFFECT [None]
  - DIZZINESS [None]
  - FEELING JITTERY [None]
  - ADJUSTMENT DISORDER [None]
  - FATIGUE [None]
  - MUSCLE ATROPHY [None]
  - IRRITABILITY [None]
  - MULTIPLE DRUG OVERDOSE ACCIDENTAL [None]
  - NAUSEA [None]
  - DIARRHOEA [None]
  - DISEASE RECURRENCE [None]
  - TENSION [None]
  - PAIN [None]
  - AGGRESSION [None]
  - MARITAL PROBLEM [None]
  - GENERALISED ANXIETY DISORDER [None]
  - MYALGIA [None]
  - PANIC ATTACK [None]
  - VOMITING [None]
  - MALAISE [None]
  - ORAL MUCOSAL DISCOLOURATION [None]
  - TREATMENT NONCOMPLIANCE [None]
  - FALL [None]
  - DEPRESSED LEVEL OF CONSCIOUSNESS [None]
  - ANXIETY [None]
  - DRUG INEFFECTIVE [None]
  - TREMOR [None]
  - DELUSION [None]
  - MIDDLE INSOMNIA [None]
  - GASTROINTESTINAL DISORDER [None]
  - SYNCOPE [None]
  - MUSCLE TWITCHING [None]
  - DEPRESSION [None]
  - MACROCYTOSIS [None]
  - HYPOCHONDRIASIS [None]
  - LETHARGY [None]
  - ANAEMIA [None]
  - THINKING ABNORMAL [None]
  - URINARY TRACT INFECTION [None]
  - DECREASED APPETITE [None]
  - HYPERHIDROSIS [None]
  - HOSTILITY [None]
